FAERS Safety Report 10252976 (Version 1)
Quarter: 2014Q2

REPORT INFORMATION
  Report Type: Spontaneous
  Country: US (occurrence: US)
  Receive Date: 20140623
  Receipt Date: 20140623
  Transmission Date: 20141212
  Serious: No
  Sender: FDA-Public Use
  Company Number: US-PFIZER INC-2014166157

PATIENT
  Age: 33 Year
  Sex: Female
  Weight: 90.7 kg

DRUGS (3)
  1. GABAPENTIN [Suspect]
     Indication: NEURALGIA
     Dosage: 800 MG, 4X/DAY
  2. NOVOLOG [Suspect]
     Dosage: UNK
     Dates: start: 201405
  3. XANAX [Concomitant]
     Dosage: UNK

REACTIONS (2)
  - Expired product administered [Unknown]
  - Muscle spasms [Not Recovered/Not Resolved]
